FAERS Safety Report 14330157 (Version 1)
Quarter: 2017Q4

REPORT INFORMATION
  Report Type: Spontaneous
  Country: US (occurrence: US)
  Receive Date: 20171227
  Receipt Date: 20171227
  Transmission Date: 20180321
  Serious: No
  Sender: FDA-Public Use
  Company Number: US-MATRIXX INITIATIVES, INC.-2037831

PATIENT
  Age: 75 Year
  Sex: Female
  Weight: 68.18 kg

DRUGS (3)
  1. GLUTATHIONE [Concomitant]
     Active Substance: GLUTATHIONE
  2. ZICAM NOS [Suspect]
     Active Substance: ACETAMINOPHEN\CHLORPHENIRAMINE MALEATE\DEXTROMETHORPHAN HYDROBROMIDE\PHENYLEPHRINE HYDROCHLORIDE OR ACETAMINOPHEN\DEXTROMETHORPHAN HYDROBROMIDE\DOXYLAMINE SUCCINATE\PHENYLEPHRINE HYDROCHLORIDE OR HOMEOPATHICS
     Indication: NASOPHARYNGITIS
     Route: 048
  3. INFLAMMACORE SUPPLEMENT [Concomitant]

REACTIONS (1)
  - Ageusia [Recovered/Resolved]
